FAERS Safety Report 9967479 (Version 1)
Quarter: 2014Q1

REPORT INFORMATION
  Report Type: Report from Study
  Country: US (occurrence: US)
  Receive Date: 20140305
  Receipt Date: 20140305
  Transmission Date: 20141002
  Serious: No
  Sender: FDA-Public Use
  Company Number: US-ABBVIE-13P-163-1138424-00

PATIENT
  Age: 65 Year
  Sex: Female

DRUGS (5)
  1. HUMIRA [Suspect]
     Indication: CROHN^S DISEASE
     Dates: start: 201112
  2. HUMIRA [Suspect]
     Dates: start: 201211
  3. COLESTIPOL [Concomitant]
     Indication: DIARRHOEA
  4. COLESTIPOL [Concomitant]
     Indication: INTESTINAL RESECTION
  5. COLESTIPOL [Concomitant]
     Indication: INTESTINAL RESECTION

REACTIONS (2)
  - Gastrooesophageal reflux disease [Recovered/Resolved]
  - Intestinal ulcer [Recovered/Resolved]
